FAERS Safety Report 8251402-7 (Version None)
Quarter: 2012Q2

REPORT INFORMATION
  Report Type: 
  Country: None (occurrence: None)
  Receive Date: 20120402
  Receipt Date: 20120328
  Transmission Date: 20120825
  Serious: Yes (Death, Hospitalization, Other)
  Sender: FDA-Public Use
  Company Number: US-PFIZER INC-2012007798

PATIENT
  Sex: Female
  Weight: 59 kg

DRUGS (14)
  1. COUMADIN [Concomitant]
     Dosage: 1MG DAILY, EXCEPT 2 MG ON WEDNESDAY AND SATURDAY
     Route: 048
  2. MIRALAX [Concomitant]
     Dosage: DAILY
     Route: 048
  3. SUTENT [Suspect]
     Indication: FALLOPIAN TUBE CANCER METASTATIC
     Dosage: 37.5 MG, 1X/DAY
     Route: 048
     Dates: start: 20111201, end: 20120103
  4. TOPROL-XL [Concomitant]
     Dosage: AT BEDTIME
     Route: 048
  5. SYNTHROID [Concomitant]
     Dosage: 50 UG, 1X/DAY
     Route: 048
  6. NAMENDA [Concomitant]
     Dosage: 10 MG, 1X/DAY
     Route: 048
  7. FUROSEMIDE [Concomitant]
  8. COMPAZINE [Concomitant]
     Indication: NAUSEA
     Dosage: 10 MG, 4X/DAY AS NEEDED
     Route: 048
  9. AMIODARONE [Concomitant]
  10. SANDOSTATIN LAR [Suspect]
  11. CITALOPRAM [Concomitant]
     Dosage: 20 MG, 1X/DAY
     Route: 048
  12. ROSUVASTATIN [Concomitant]
  13. SPIRONOLACTONE [Concomitant]
  14. LISINOPRIL [Concomitant]

REACTIONS (12)
  - HEPATITIS ACUTE [None]
  - RECTAL HAEMORRHAGE [None]
  - ACUTE HEPATIC FAILURE [None]
  - FATIGUE [None]
  - RENAL FAILURE [None]
  - CARDIAC FAILURE CONGESTIVE [None]
  - NAUSEA [None]
  - VOMITING [None]
  - HYPOTENSION [None]
  - HYPOPHAGIA [None]
  - COAGULOPATHY [None]
  - PETECHIAE [None]
